FAERS Safety Report 24064510 (Version 1)
Quarter: 2024Q3

REPORT INFORMATION
  Report Type: Report from Study
  Country: IN (occurrence: IN)
  Receive Date: 20240709
  Receipt Date: 20240709
  Transmission Date: 20241016
  Serious: Yes (Death)
  Sender: ROCHE
  Company Number: IN-ROCHE-3545780

PATIENT
  Age: 78 Year
  Sex: Male

DRUGS (1)
  1. TECENTRIQ [Suspect]
     Active Substance: ATEZOLIZUMAB
     Indication: Small cell lung cancer
     Route: 041
     Dates: start: 20230818

REACTIONS (3)
  - Off label use [Unknown]
  - Hepatitis B [Unknown]
  - Death [Fatal]

NARRATIVE: CASE EVENT DATE: 20240620
